FAERS Safety Report 9693575 (Version 1)
Quarter: 2013Q4

REPORT INFORMATION
  Report Type: Spontaneous
  Country: US (occurrence: US)
  Receive Date: 20131118
  Receipt Date: 20131118
  Transmission Date: 20140711
  Serious: Yes (Death, Other)
  Sender: FDA-Public Use
  Company Number: US-BAXTER-2013BAX045178

PATIENT
  Age: 58 Year
  Sex: 0

DRUGS (5)
  1. FORANE (ISOFLURANE, USP) [Suspect]
     Indication: ENDOTRACHEAL INTUBATION
     Route: 065
  2. ETOMIDATE [Suspect]
     Indication: ENDOTRACHEAL INTUBATION
     Route: 065
  3. FENTANYL [Suspect]
     Indication: ENDOTRACHEAL INTUBATION
     Route: 065
  4. MIDAZOLAM [Suspect]
     Indication: ENDOTRACHEAL INTUBATION
     Route: 065
  5. SUCCINYLCHOLINE [Suspect]
     Indication: ENDOTRACHEAL INTUBATION
     Route: 065

REACTIONS (4)
  - Cardiac arrest [Fatal]
  - Cardiac arrest [Not Recovered/Not Resolved]
  - Hyperkalaemia [Not Recovered/Not Resolved]
  - Rhabdomyolysis [Not Recovered/Not Resolved]
